FAERS Safety Report 13099931 (Version 1)
Quarter: 2017Q1

REPORT INFORMATION
  Report Type: Report from Study
  Country: None (occurrence: BR)
  Receive Date: 20170110
  Receipt Date: 20170110
  Transmission Date: 20170428
  Serious: Yes (Other)
  Sender: FDA-Public Use
  Company Number: BR-ABBVIE-17P-020-1831202-00

PATIENT
  Age: 26 Year
  Sex: Male
  Weight: 95 kg

DRUGS (10)
  1. OMEPRAZOLE. [Concomitant]
     Active Substance: OMEPRAZOLE
     Indication: PROPHYLAXIS
  2. UREA. [Concomitant]
     Active Substance: UREA
     Indication: DANDRUFF
     Dosage: FORM OF ADMINISTRATION: LOTION
     Route: 061
     Dates: start: 201611
  3. KETOCONAZOLE. [Concomitant]
     Active Substance: KETOCONAZOLE
     Indication: DANDRUFF
     Route: 061
     Dates: start: 201607
  4. KETOCONAZOLE. [Concomitant]
     Active Substance: KETOCONAZOLE
     Indication: DANDRUFF
     Dosage: FORM OF ADMINISTRATION: LOTION
     Route: 061
     Dates: start: 201611
  5. SALICYLIC ACID. [Concomitant]
     Active Substance: SALICYLIC ACID
     Indication: DANDRUFF
     Route: 061
     Dates: start: 201607
  6. PAROXETINE. [Concomitant]
     Active Substance: PAROXETINE
     Indication: PREMATURE EJACULATION
     Route: 048
     Dates: start: 201611
  7. SALICYLIC ACID. [Concomitant]
     Active Substance: SALICYLIC ACID
     Indication: DANDRUFF
     Dosage: FORM OF ADMINISTRATION: LOTION
     Route: 061
     Dates: start: 201611
  8. HUMIRA [Suspect]
     Active Substance: ADALIMUMAB
     Indication: ANKYLOSING SPONDYLITIS
     Route: 058
     Dates: start: 201609
  9. OMEPRAZOLE. [Concomitant]
     Active Substance: OMEPRAZOLE
     Indication: GASTRIC DISORDER
     Route: 048
     Dates: start: 201609
  10. ACTINE [Concomitant]
     Active Substance: GLIPIZIDE
     Indication: DANDRUFF
     Dosage: FORM OF ADMINISTRATION: SOAP
     Route: 061
     Dates: start: 201610

REACTIONS (9)
  - Injection site pain [Not Recovered/Not Resolved]
  - Hallucination [Not Recovered/Not Resolved]
  - Pain in extremity [Not Recovered/Not Resolved]
  - Diarrhoea [Recovering/Resolving]
  - Paraesthesia [Not Recovered/Not Resolved]
  - Abdominal pain [Not Recovered/Not Resolved]
  - Pruritus generalised [Not Recovered/Not Resolved]
  - Abdominal pain [Unknown]
  - Visual impairment [Not Recovered/Not Resolved]

NARRATIVE: CASE EVENT DATE: 201609
